FAERS Safety Report 10272936 (Version 1)
Quarter: 2014Q2

REPORT INFORMATION
  Report Type: Spontaneous
  Country: US (occurrence: None)
  Receive Date: 20140630
  Receipt Date: 20140630
  Transmission Date: 20141212
  Serious: No
  Sender: FDA-Public Use
  Company Number: None

PATIENT
  Age: 50 Year
  Sex: 0
  Weight: 106.6 kg

DRUGS (1)
  1. QSYMIA [Suspect]
     Route: 048
     Dates: start: 20140401, end: 20140416

REACTIONS (3)
  - Nervousness [None]
  - Affective disorder [None]
  - Aggression [None]
